FAERS Safety Report 8275755-9 (Version None)
Quarter: 2012Q2

REPORT INFORMATION
  Report Type: 
  Country: None (occurrence: None)
  Receive Date: 20120410
  Receipt Date: 20120410
  Transmission Date: 20120825
  Serious: Yes (Hospitalization)
  Sender: FDA-Public Use
  Company Number: None

PATIENT
  Age: 29 Year
  Sex: Male
  Weight: 61.8 kg

DRUGS (2)
  1. FENTANYL [Suspect]
     Dosage: 250 MCG ONCE IV
     Route: 042
     Dates: start: 20120309, end: 20120309
  2. DESFLURANE [Suspect]
     Indication: SEDATIVE THERAPY
     Dosage: INHALE
     Route: 055
     Dates: start: 20120309, end: 20120309

REACTIONS (7)
  - MUSCLE SPASMS [None]
  - MUSCLE RIGIDITY [None]
  - HYPERTONIA [None]
  - CHILLS [None]
  - TRISMUS [None]
  - BLOOD CREATINE PHOSPHOKINASE INCREASED [None]
  - MALIGNANT HYPERTENSION [None]
